FAERS Safety Report 6124359-2 (Version None)
Quarter: 2009Q1

REPORT INFORMATION
  Report Type: 
  Country: None (occurrence: None)
  Receive Date: 20090318
  Receipt Date: 20090318
  Transmission Date: 20090719
  Serious: Yes (Other)
  Sender: FDA-Public Use
  Company Number: None

PATIENT
  Age: 68 Year
  Sex: Male

DRUGS (1)
  1. ALDARA [Suspect]
     Indication: ACTINIC KERATOSIS
     Dosage: CREAM UNK TOP
     Route: 061

REACTIONS (7)
  - INFECTION [None]
  - LYMPHADENITIS [None]
  - LYMPHADENOPATHY [None]
  - NECROSIS [None]
  - PURULENCE [None]
  - SIALOADENITIS [None]
  - STAPHYLOCOCCAL INFECTION [None]
